FAERS Safety Report 16724177 (Version 2)
Quarter: 2019Q3

REPORT INFORMATION
  Report Type: Spontaneous
  Country: GB (occurrence: GB)
  Receive Date: 20190821
  Receipt Date: 20190826
  Transmission Date: 20191005
  Serious: Yes (Hospitalization, Other)
  Sender: FDA-Public Use
  Company Number: GB-DRREDDYS-USA/UKI/19/0113321

PATIENT
  Age: 11 Year
  Sex: Male

DRUGS (4)
  1. VITAMIN D [Concomitant]
     Active Substance: VITAMIN D NOS
     Indication: PROPHYLAXIS
     Dosage: VITAMIN D SUPPLEMENTATION
  2. ZOLEDRONIC ACID [Suspect]
     Active Substance: ZOLEDRONIC ACID
     Indication: SPINAL COMPRESSION FRACTURE
     Dosage: RECEIVED A HALF DOSE OF ZOLEDRONATE (0.025 MG/KG)
  3. CALCIUM [Concomitant]
     Active Substance: CALCIUM
     Indication: PROPHYLAXIS
     Dosage: CALCIUM SUPPLEMENTATION AS PER HOSPITAL PROTOCOL
  4. DEFLAZACORT [Concomitant]
     Active Substance: DEFLAZACORT
     Indication: DUCHENNE MUSCULAR DYSTROPHY

REACTIONS (5)
  - Myoglobinuria [Recovered/Resolved]
  - Hypophosphataemia [Recovered/Resolved]
  - Inflammation [Recovered/Resolved]
  - Hypocalcaemia [Recovered/Resolved]
  - Rhabdomyolysis [Recovered/Resolved]
